FAERS Safety Report 9593052 (Version 1)
Quarter: 2013Q4

REPORT INFORMATION
  Report Type: Spontaneous
  Country: NL (occurrence: NL)
  Receive Date: 20131004
  Receipt Date: 20131004
  Transmission Date: 20140711
  Serious: Yes (Other)
  Sender: FDA-Public Use
  Company Number: NL-ASTELLAS-2013EU008282

PATIENT
  Sex: Male
  Weight: 87 kg

DRUGS (1)
  1. ADVAGRAF [Suspect]
     Indication: RENAL TRANSPLANT
     Dosage: 14 MG, UID/QD
     Route: 048
     Dates: start: 20110919

REACTIONS (2)
  - Product solubility abnormal [Unknown]
  - Immunosuppressant drug level decreased [Unknown]
